FAERS Safety Report 26046015 (Version 1)
Quarter: 2025Q4

REPORT INFORMATION
  Report Type: Spontaneous
  Country: US (occurrence: None)
  Receive Date: 20251113
  Receipt Date: 20251113
  Transmission Date: 20260118
  Serious: Yes (Hospitalization)
  Sender: FDA-CTU
  Company Number: None

PATIENT
  Sex: Female

DRUGS (2)
  1. HUMIRA [Suspect]
     Active Substance: ADALIMUMAB
     Indication: Uveitis
     Dosage: 40 MG EVERY 14 DAYS  SUBCUTANEOUS ?
     Route: 058
     Dates: start: 20250919
  2. HUMIRA PEN PS/UV STRT (ABB) [Concomitant]

REACTIONS (4)
  - Asthenia [None]
  - Urinary tract infection [None]
  - Sepsis [None]
  - Pleural effusion [None]
